FAERS Safety Report 4567425-5 (Version None)
Quarter: 2005Q1

REPORT INFORMATION
  Report Type: 
  Country: None (occurrence: None)
  Receive Date: 20050127
  Receipt Date: 20050120
  Transmission Date: 20050727
  Serious: Yes (Other)
  Sender: FDA-Public Use
  Company Number: 2005-01-0002

PATIENT
  Age: 16 Year
  Sex: Male

DRUGS (4)
  1. QVAR INHALATION AEROSOL - IVAX LABORATORIES ORAL AEROSOL [Suspect]
     Indication: BRONCHOSPASM
     Dosage: 4 PUFFS BID INHALATION
     Route: 055
     Dates: start: 20041214
  2. QVAR INHALATION AEROSOL - IVAX LABORATORIES ORAL AEROSOL [Suspect]
     Indication: VIRAL INFECTION
     Dosage: 4 PUFFS BID INHALATION
     Route: 055
     Dates: start: 20041214
  3. OXYTETRACYCLINE [Suspect]
     Dosage: 1000MG ORAL
     Route: 048
     Dates: start: 20040927
  4. ALBUTEROL [Concomitant]

REACTIONS (3)
  - ORBITAL OEDEMA [None]
  - PENILE SWELLING [None]
  - PENILE ULCERATION [None]
